FAERS Safety Report 8097580-4 (Version None)
Quarter: 2012Q1

REPORT INFORMATION
  Report Type: 
  Country: None (occurrence: None)
  Receive Date: 20120128
  Receipt Date: 20110719
  Transmission Date: 20120608
  Serious: No
  Sender: FDA-Public Use
  Company Number: US-ABBOTT-10P-163-0672198-00

PATIENT
  Age: 45 Year
  Sex: Female

DRUGS (14)
  1. UNKNOWN MEDICATION COMBINED WITH HCTZ [Concomitant]
     Indication: HYPERTENSION
  2. FLAXSEED OIL [Concomitant]
     Indication: SUPPLEMENTATION THERAPY
  3. CALCIUM +D [Concomitant]
     Indication: MINERAL SUPPLEMENTATION
     Dosage: DAILY
  4. PENTASA [Concomitant]
     Indication: CROHN'S DISEASE
     Dosage: DAILY
  5. MERCAPTOPURINE [Concomitant]
     Indication: CROHN'S DISEASE
     Dosage: 50MG 1 1/2 TABLETS DAILY
  6. FLONASE [Concomitant]
     Indication: SEASONAL ALLERGY
     Dosage: SPRAY 2 PUFFS EACH NOSTRIL PRN
     Route: 045
  7. MULTI-VITAMINS [Concomitant]
     Indication: PRODUCT USED FOR UNKNOWN INDICATION
  8. HUMIRA [Suspect]
     Indication: CROHN'S DISEASE
     Dates: start: 20100828
  9. VITAMIN B-12 [Concomitant]
     Indication: CROHN'S DISEASE
  10. LOEGESTROL BIRTH CONTROL PILLS [Concomitant]
     Indication: ORAL CONTRACEPTION
  11. FOLIC ACID [Concomitant]
     Indication: VITAMIN SUPPLEMENTATION
     Dosage: DAILY
  12. FISH OIL [Concomitant]
     Indication: SUPPLEMENTATION THERAPY
     Dosage: DAILY
  13. CELEXA [Concomitant]
     Indication: ANXIETY
  14. ELAVIL [Concomitant]
     Indication: ANXIETY
     Dosage: DAILY

REACTIONS (3)
  - INJECTION SITE PAIN [None]
  - INJECTION SITE HAEMATOMA [None]
  - CONTUSION [None]
